FAERS Safety Report 20354338 (Version 1)
Quarter: 2022Q1

REPORT INFORMATION
  Report Type: Other
  Country: CA (occurrence: CA)
  Receive Date: 20220120
  Receipt Date: 20220120
  Transmission Date: 20220423
  Serious: Yes (Death, Hospitalization, Other)
  Sender: FDA-Public Use
  Company Number: CA-GLENMARK PHARMACEUTICALS-2022GMK069795

PATIENT

DRUGS (4)
  1. GABAPENTIN [Suspect]
     Active Substance: GABAPENTIN
     Indication: Product used for unknown indication
     Dosage: 25.5 GRAM
     Route: 048
  2. ACETAMINOPHEN [Suspect]
     Active Substance: ACETAMINOPHEN
     Indication: Product used for unknown indication
     Dosage: 50 GRAM
     Route: 048
  3. MORPHINE [Suspect]
     Active Substance: MORPHINE
     Indication: Product used for unknown indication
     Dosage: 60 MILLIGRAM
     Route: 048
  4. MORPHINE SULFATE [Suspect]
     Active Substance: MORPHINE SULFATE
     Indication: Product used for unknown indication
     Dosage: 60 MILLIGRAM
     Route: 048

REACTIONS (13)
  - Brain oedema [Fatal]
  - Cerebral haemorrhage [Fatal]
  - Coagulopathy [Fatal]
  - Continuous haemodiafiltration [Fatal]
  - Depressed level of consciousness [Fatal]
  - Diffuse axonal injury [Fatal]
  - Encephalopathy [Fatal]
  - Endotracheal intubation [Fatal]
  - Haemodialysis [Fatal]
  - Hepatic failure [Fatal]
  - Hypoglycaemia [Fatal]
  - Intentional overdose [Fatal]
  - Renal replacement therapy [Fatal]
